FAERS Safety Report 11949498 (Version 1)
Quarter: 2016Q1

REPORT INFORMATION
  Report Type: Spontaneous
  Country: US (occurrence: US)
  Receive Date: 20160125
  Receipt Date: 20160125
  Transmission Date: 20160526
  Serious: Yes (Disabling)
  Sender: FDA-Public Use
  Company Number: US-PRESTIGE BRANDS -1046895

PATIENT
  Sex: Male

DRUGS (1)
  1. DEBROX [Suspect]
     Active Substance: CARBAMIDE PEROXIDE
     Indication: CERUMEN REMOVAL
     Route: 001
     Dates: start: 20151229, end: 20160104

REACTIONS (2)
  - Hypoacusis [Not Recovered/Not Resolved]
  - Deafness unilateral [None]

NARRATIVE: CASE EVENT DATE: 20160102
